FAERS Safety Report 4291977-6 (Version None)
Quarter: 2004Q1

REPORT INFORMATION
  Report Type: 
  Country: None (occurrence: None)
  Receive Date: 20040210
  Receipt Date: 20040210
  Transmission Date: 20041129
  Serious: Yes (Life-Threatening, Hospitalization)
  Sender: FDA-Public Use
  Company Number: None

PATIENT
  Age: 45 Year
  Sex: Male
  Weight: 91.9 kg

DRUGS (1)
  1. INTERFERON ALFA 2-B [Suspect]

REACTIONS (2)
  - BODY TEMPERATURE INCREASED [None]
  - PHYSICAL EXAMINATION ABNORMAL [None]
